FAERS Safety Report 11082358 (Version 4)
Quarter: 2016Q1

REPORT INFORMATION
  Report Type: Spontaneous
  Country: JP (occurrence: JP)
  Receive Date: 20150501
  Receipt Date: 20160205
  Transmission Date: 20160525
  Serious: Yes (Other)
  Sender: FDA-Public Use
  Company Number: PHJP2015JP006924

PATIENT
  Age: 21 Year
  Sex: Male
  Weight: 62 kg

DRUGS (1)
  1. RIAMET [Suspect]
     Active Substance: ARTEMETHER\LUMEFANTRINE
     Indication: PLASMODIUM FALCIPARUM INFECTION
     Dosage: 1 DF, UNK (20 MG ARTEMETHER AND 120 MG LUMEFANTRINE)
     Route: 065

REACTIONS (5)
  - Decreased appetite [Unknown]
  - Haemolytic anaemia [Recovering/Resolving]
  - Plasmodium falciparum infection [Unknown]
  - Disease recurrence [Unknown]
  - Drug effect delayed [Unknown]
